FAERS Safety Report 10470798 (Version 3)
Quarter: 2015Q1

REPORT INFORMATION
  Report Type: Spontaneous
  Country: JP (occurrence: JP)
  Receive Date: 20140923
  Receipt Date: 20150127
  Transmission Date: 20150720
  Serious: Yes (Death)
  Sender: FDA-Public Use
  Company Number: JP-TEVA-510754ISR

PATIENT
  Sex: Male
  Weight: 36 kg

DRUGS (13)
  1. MORPHINE HYDROCHLORIDE HYDRATE [Concomitant]
     Active Substance: MORPHINE HYDROCHLORIDE
     Dosage: 10MG
     Route: 054
     Dates: end: 20140719
  2. E-FEN BUCCAL [Suspect]
     Active Substance: FENTANYL CITRATE
     Indication: BREAKTHROUGH PAIN
     Dosage: DAILY DOSE: 50-100 MICROGRAM
     Route: 002
     Dates: start: 20140623, end: 20140626
  3. E-FEN BUCCAL [Suspect]
     Active Substance: FENTANYL CITRATE
     Dosage: DAILY DOSE: 100-400 MICROGRAM
     Route: 002
     Dates: start: 20140627, end: 20140701
  4. FENTOS [Concomitant]
     Active Substance: FENTANYL
     Dosage: 8 MG
     Route: 062
     Dates: start: 20140713, end: 20140716
  5. AMOBAN [Concomitant]
     Active Substance: ZOPICLONE
     Indication: INSOMNIA
     Dosage: 7.5MG
     Route: 048
     Dates: end: 20140719
  6. E-FEN BUCCAL [Suspect]
     Active Substance: FENTANYL CITRATE
     Dosage: DAILY DOSE: 400-1200 MICROGRAM
     Route: 002
     Dates: start: 20140716, end: 20140719
  7. FENTOS [Concomitant]
     Active Substance: FENTANYL
     Indication: CANCER PAIN
     Dosage: 4 MG
     Route: 062
     Dates: start: 20140702, end: 20140708
  8. MAGMITT [Concomitant]
     Active Substance: MAGNESIUM OXIDE
     Indication: CONSTIPATION
     Dosage: 1500MG
     Route: 048
     Dates: end: 20140719
  9. FENTOS [Concomitant]
     Active Substance: FENTANYL
     Dosage: 6 MG
     Route: 062
     Dates: start: 20140709, end: 20140712
  10. OXYCODONE [Concomitant]
     Active Substance: OXYCODONE
     Indication: CANCER PAIN
     Dosage: 2.5MG
     Route: 048
     Dates: end: 20140623
  11. E-FEN BUCCAL [Suspect]
     Active Substance: FENTANYL CITRATE
     Dosage: DAILY DOSE: 0-400 MICROGRAM
     Route: 002
     Dates: start: 20140702, end: 20140715
  12. FENTOS [Concomitant]
     Active Substance: FENTANYL
     Dosage: 10 MG
     Route: 062
     Dates: start: 20140717, end: 20140719
  13. MORPHINE HYDROCHLORIDE HYDRATE [Concomitant]
     Active Substance: MORPHINE HYDROCHLORIDE
     Indication: CANCER PAIN
     Dosage: 10MG
     Route: 054
     Dates: start: 20140624, end: 20140709

REACTIONS (1)
  - Tongue neoplasm malignant stage unspecified [Fatal]
